FAERS Safety Report 10574046 (Version 2)
Quarter: 2014Q4

REPORT INFORMATION
  Report Type: Spontaneous
  Country: US (occurrence: US)
  Receive Date: 20141110
  Receipt Date: 20141126
  Transmission Date: 20150529
  Serious: No
  Sender: FDA-Public Use
  Company Number: US-ELI_LILLY_AND_COMPANY-US201410011696

PATIENT
  Sex: Male
  Weight: 86.17 kg

DRUGS (1)
  1. ILETIN BEEF/PORK LENTE [Suspect]
     Active Substance: INSULIN BEEF/PORK
     Indication: PRODUCT USED FOR UNKNOWN INDICATION
     Dosage: UNK UNK, PRN
     Route: 065

REACTIONS (1)
  - Injection site scar [Unknown]
